FAERS Safety Report 23131812 (Version 2)
Quarter: 2024Q4

REPORT INFORMATION
  Report Type: Spontaneous
  Country: US (occurrence: US)
  Receive Date: 20231101
  Receipt Date: 20241016
  Transmission Date: 20250115
  Serious: No
  Sender: SANOFI AVENTIS
  Company Number: US-SA-SAC20231030001441

PATIENT
  Age: 59 Year
  Sex: Female
  Weight: 123 kg

DRUGS (9)
  1. DUPIXENT [Suspect]
     Active Substance: DUPILUMAB
     Indication: Dermatitis atopic
     Dosage: 300 MG, QOW
     Route: 058
     Dates: start: 201803
  2. DESLORATADINE [Concomitant]
     Active Substance: DESLORATADINE
     Dosage: UNK
  3. LOSARTAN POTASSIUM [Concomitant]
     Active Substance: LOSARTAN POTASSIUM
     Dosage: UNK
  4. ROSUVASTATIN CALCIUM [Concomitant]
     Active Substance: ROSUVASTATIN CALCIUM
  5. METFORMIN HYDROCHLORIDE [Concomitant]
     Active Substance: METFORMIN HYDROCHLORIDE
     Dosage: UNK
  6. AMLODIPINE BESYLATE [Concomitant]
     Active Substance: AMLODIPINE BESYLATE
     Dosage: UNK
  7. OMEPRAZOLE [Concomitant]
     Active Substance: OMEPRAZOLE
     Dosage: UNK
  8. DILTIAZEM [Concomitant]
     Active Substance: DILTIAZEM
     Dosage: 24 HR
  9. GLIPIZIDE [Concomitant]
     Active Substance: GLIPIZIDE
     Dosage: UNK

REACTIONS (5)
  - Skin disorder [Unknown]
  - Injection site pain [Unknown]
  - Dermatitis atopic [Unknown]
  - Dry skin [Unknown]
  - Therapeutic response shortened [Unknown]
